FAERS Safety Report 9973284 (Version 1)
Quarter: 2014Q1

REPORT INFORMATION
  Report Type: Spontaneous
  Country: US (occurrence: None)
  Receive Date: 20140127
  Receipt Date: 20140127
  Transmission Date: 20141002
  Serious: Yes (Other)
  Sender: FDA-Public Use
  Company Number: 1221719

PATIENT
  Sex: Male

DRUGS (2)
  1. RITUXAN [Suspect]
     Indication: WALDENSTROM^S MACROGLOBULINAEMIA
     Dates: start: 20130428
  2. BENADRYL (DIPHENHYDRAMINE HYDROCHLORIDE) [Concomitant]

REACTIONS (7)
  - Dyspnoea [None]
  - Pharyngeal oedema [None]
  - Pyrexia [None]
  - Hypotension [None]
  - Chills [None]
  - Pain [None]
  - Night sweats [None]
